FAERS Safety Report 5251116-1 (Version None)
Quarter: 2007Q1

REPORT INFORMATION
  Report Type: 
  Country: None (occurrence: None)
  Receive Date: 20070228
  Receipt Date: 20060915
  Transmission Date: 20070707
  Serious: No
  Sender: FDA-Public Use
  Company Number: US-GLAXOSMITHKLINE-A0618471A

PATIENT
  Age: 58 Year
  Sex: Female
  Weight: 76.4 kg

DRUGS (3)
  1. LAMICTAL [Suspect]
     Indication: BIPOLAR DISORDER
     Dosage: 200MG TWICE PER DAY
     Route: 048
     Dates: start: 20020101
  2. DIET PILL UNSPECIFIED [Concomitant]
  3. WELLBUTRIN SR [Concomitant]
     Route: 048

REACTIONS (4)
  - BALANCE DISORDER [None]
  - ILL-DEFINED DISORDER [None]
  - INFLUENZA LIKE ILLNESS [None]
  - WEIGHT DECREASED [None]
